FAERS Safety Report 7516103-9 (Version None)
Quarter: 2011Q2

REPORT INFORMATION
  Report Type: 
  Country: None (occurrence: None)
  Receive Date: 20110520
  Receipt Date: 20110512
  Transmission Date: 20111010
  Serious: Yes (Death, Hospitalization)
  Sender: FDA-Public Use
  Company Number: UTC-006755

PATIENT
  Age: 56 Year
  Sex: Female

DRUGS (1)
  1. REMODULIN [Suspect]
     Indication: PULMONARY ARTERIAL HYPERTENSION
     Dosage: 104.688 UG/KG (0.0727 UG/KG, 1 IN 1 MIN)SUBCUTANEOUS
     Route: 058
     Dates: start: 20071029

REACTIONS (2)
  - DIALYSIS [None]
  - RENAL FAILURE [None]
